FAERS Safety Report 10090966 (Version 2)
Quarter: 2014Q2

REPORT INFORMATION
  Report Type: Spontaneous
  Country: US (occurrence: US)
  Receive Date: 20140421
  Receipt Date: 20140421
  Transmission Date: 20141212
  Serious: No
  Sender: FDA-Public Use
  Company Number: US-GILEAD-2012-0063543

PATIENT
  Age: 78 Year
  Sex: Female

DRUGS (2)
  1. LETAIRIS [Suspect]
     Indication: PULMONARY HYPERTENSION
     Dosage: 5 MG, QD
     Route: 048
     Dates: start: 20121003, end: 20121018
  2. LETAIRIS [Suspect]
     Indication: UNEVALUABLE EVENT

REACTIONS (2)
  - Peripheral swelling [Not Recovered/Not Resolved]
  - Swelling face [Not Recovered/Not Resolved]
